FAERS Safety Report 7790385-0 (Version None)
Quarter: 2011Q3

REPORT INFORMATION
  Report Type: 
  Country: None (occurrence: None)
  Receive Date: 20110930
  Receipt Date: 20110923
  Transmission Date: 20111222
  Serious: Yes (Other)
  Sender: FDA-Public Use
  Company Number: CHPA2011US13213

PATIENT
  Age: 40 Year
  Sex: Female

DRUGS (4)
  1. VOLTAREN [Suspect]
     Indication: RHEUMATOID ARTHRITIS
  2. PREDNISONE [Concomitant]
  3. VOLTAREN [Suspect]
     Indication: NECK PAIN
     Dosage: SIZE OF PENNY (AOUT LESS THAN THE TOP OF FINGER), BID
     Route: 061
  4. PROPRANOLOL [Concomitant]

REACTIONS (4)
  - THERAPEUTIC RESPONSE UNEXPECTED [None]
  - DRUG ADMINISTERED AT INAPPROPRIATE SITE [None]
  - OFF LABEL USE [None]
  - INTERVERTEBRAL DISC OPERATION [None]
